FAERS Safety Report 11909027 (Version 1)
Quarter: 2016Q1

REPORT INFORMATION
  Report Type: Spontaneous
  Country: US (occurrence: US)
  Receive Date: 20160111
  Receipt Date: 20160111
  Transmission Date: 20160526
  Serious: No
  Sender: FDA-Public Use
  Company Number: US-HOSPIRA-2639780

PATIENT
  Age: 22 Year
  Sex: Female

DRUGS (1)
  1. LABETALOL HYDROCHLORIDE. [Suspect]
     Active Substance: LABETALOL HYDROCHLORIDE
     Indication: BLOOD PRESSURE MANAGEMENT
     Dosage: TOTAL DOSE: 280 MG
     Route: 042
     Dates: start: 20141101

REACTIONS (2)
  - Drug ineffective [Unknown]
  - No adverse event [None]

NARRATIVE: CASE EVENT DATE: 20141101
